FAERS Safety Report 10861264 (Version 1)
Quarter: 2015Q1

REPORT INFORMATION
  Report Type: Spontaneous
  Country: US (occurrence: US)
  Receive Date: 20150224
  Receipt Date: 20150224
  Transmission Date: 20150721
  Serious: Yes (Death)
  Sender: FDA-Public Use
  Company Number: US-BANPHARM-20153465

PATIENT
  Age: 68 Year
  Sex: Male

DRUGS (4)
  1. FOLIC ACID. [Suspect]
     Active Substance: FOLIC ACID
  2. FUROSEMIDE. [Suspect]
     Active Substance: FUROSEMIDE
  3. SALICYLATE [Suspect]
     Active Substance: SALICYLIC ACID
  4. BENZONATATE UNKNOWN PRODUCT [Suspect]
     Active Substance: BENZONATATE
     Route: 048

REACTIONS (2)
  - Completed suicide [Fatal]
  - Exposure via ingestion [None]
